FAERS Safety Report 21972520 (Version 1)
Quarter: 2023Q1

REPORT INFORMATION
  Report Type: Spontaneous
  Country: SE (occurrence: SE)
  Receive Date: 20230209
  Receipt Date: 20230209
  Transmission Date: 20230418
  Serious: Yes (Hospitalization, Other)
  Sender: FDA-Public Use
  Company Number: SE-AMGEN-SWESP2023019218

PATIENT
  Age: 59 Year

DRUGS (4)
  1. ROMIPLOSTIM [Suspect]
     Active Substance: ROMIPLOSTIM
     Indication: Thrombocytopenia
     Dosage: UNK
     Route: 065
  2. RITUXIMAB [Concomitant]
     Active Substance: RITUXIMAB
     Indication: Thrombocytopenia
     Dosage: UNK
     Route: 065
  3. Immunoglobulin [Concomitant]
     Indication: Thrombocytopenia
     Dosage: UNK
     Route: 040
  4. Immunoglobulin [Concomitant]
     Indication: Haemophagocytic lymphohistiocytosis

REACTIONS (17)
  - Neutropenia [Unknown]
  - Febrile neutropenia [Unknown]
  - Aplastic anaemia [Unknown]
  - Bronchopulmonary aspergillosis [Unknown]
  - White blood cell count decreased [Unknown]
  - Staphylococcus test positive [Unknown]
  - Streptococcus test positive [Unknown]
  - Blood alkaline phosphatase increased [Unknown]
  - Candida infection [Recovering/Resolving]
  - Haemophagocytic lymphohistiocytosis [Unknown]
  - Blood creatinine increased [Unknown]
  - Fungal infection [Recovering/Resolving]
  - Respiratory tract infection viral [Recovering/Resolving]
  - Neuropathy peripheral [Unknown]
  - Alanine aminotransferase increased [Unknown]
  - Taste disorder [Unknown]
  - Drug ineffective [Unknown]
